FAERS Safety Report 8008849-3 (Version None)
Quarter: 2011Q4

REPORT INFORMATION
  Report Type: 
  Country: None (occurrence: None)
  Receive Date: 20111221
  Receipt Date: 20111206
  Transmission Date: 20120403
  Serious: Yes (Life-Threatening, Hospitalization, Other)
  Sender: FDA-Public Use
  Company Number: 2011SGN00331

PATIENT
  Age: 38 Year
  Sex: Male
  Weight: 130.2 kg

DRUGS (1)
  1. ADCETRIS [Suspect]
     Indication: HODGKIN'S DISEASE
     Dosage: 180 MG
     Dates: start: 20111020, end: 20111020

REACTIONS (5)
  - FEELING ABNORMAL [None]
  - THROMBOCYTOPENIA [None]
  - AUTOIMMUNE DISORDER [None]
  - CARDIOGENIC SHOCK [None]
  - CONDITION AGGRAVATED [None]
